FAERS Safety Report 8461518-8 (Version None)
Quarter: 2012Q2

REPORT INFORMATION
  Report Type: 
  Country: None (occurrence: None)
  Receive Date: 20120619
  Receipt Date: 20120619
  Transmission Date: 20120825
  Serious: No
  Sender: FDA-Public Use
  Company Number: None

PATIENT
  Sex: Female

DRUGS (1)
  1. TRACLEER 125 MG ACETLIN 125 MG BID PO [Suspect]
     Indication: PULMONARY ARTERIAL HYPERTENSION
     Dosage: 125MG BID PO
     Route: 048
     Dates: start: 20120321

REACTIONS (2)
  - OEDEMA PERIPHERAL [None]
  - JOINT SWELLING [None]
